FAERS Safety Report 5957500-2 (Version None)
Quarter: 2008Q4

REPORT INFORMATION
  Report Type: 
  Country: None (occurrence: None)
  Receive Date: 20081113
  Receipt Date: 20081103
  Transmission Date: 20090506
  Serious: Yes (Other)
  Sender: FDA-Public Use
  Company Number: CHPA2008US18891

PATIENT
  Age: 56 Year
  Sex: Female

DRUGS (14)
  1. VOLTAREN [Suspect]
     Indication: BURSITIS
     Dosage: ONCE/SINGLE, TOPICAL
     Route: 061
     Dates: start: 20080811, end: 20080811
  2. PREVACID [Concomitant]
  3. LORATAB (LORATADINE) [Concomitant]
  4. WELLBUTRIN [Concomitant]
  5. ZIAC [Concomitant]
  6. KLONOPIN [Concomitant]
  7. CALCIUM (CALCIUM) [Concomitant]
  8. DARVOCET-N (DEXTROPROPDXYPHENE NAPSILATE, PARACETAMOL) [Concomitant]
  9. TEKTURNA [Concomitant]
  10. ASPIRIN [Concomitant]
  11. VITAMIN E [Concomitant]
  12. BENTYL [Concomitant]
  13. PREDNISONE [Concomitant]
  14. PLAQUENIL [Concomitant]

REACTIONS (4)
  - DRUG ADMINISTERED AT INAPPROPRIATE SITE [None]
  - LIP SWELLING [None]
  - PHARYNGEAL OEDEMA [None]
  - SWOLLEN TONGUE [None]
